FAERS Safety Report 7951333-3 (Version None)
Quarter: 2011Q4

REPORT INFORMATION
  Report Type: 
  Country: None (occurrence: None)
  Receive Date: 20111129
  Receipt Date: 20111114
  Transmission Date: 20120403
  Serious: Yes (Other)
  Sender: FDA-Public Use
  Company Number: TR-1188818

PATIENT
  Age: 68 Year
  Sex: Female

DRUGS (4)
  1. BSS [Suspect]
     Dosage: (INTRAOCULAR)
     Route: 031
  2. VIGAMOX [Suspect]
     Indication: PROPHYLAXIS
     Dosage: (INTRAOCULAR), (INTRAOCULAR)
     Route: 031
     Dates: start: 20111020, end: 20111020
  3. VIGAMOX [Suspect]
     Indication: PROPHYLAXIS
     Dosage: (INTRAOCULAR), (INTRAOCULAR)
     Route: 031
     Dates: start: 20111020, end: 20111020
  4. VIGAMOX [Suspect]

REACTIONS (4)
  - TOXIC ANTERIOR SEGMENT SYNDROME [None]
  - EYE PAIN [None]
  - EYE IRRITATION [None]
  - OFF LABEL USE [None]
